FAERS Safety Report 10569302 (Version 7)
Quarter: 2015Q1

REPORT INFORMATION
  Report Type: Report from Study
  Country: BR (occurrence: BR)
  Receive Date: 20141106
  Receipt Date: 20150105
  Transmission Date: 20150720
  Serious: Yes (Hospitalization)
  Sender: FDA-Public Use
  Company Number: BR-ROCHE-1478657

PATIENT
  Age: 31 Year
  Sex: Female

DRUGS (8)
  1. TRASTUZUMAB [Suspect]
     Active Substance: TRASTUZUMAB
     Dosage: MAINTAINANCE DOSE, LAST DOSE PRIOR TO SAE WAS ON 13/OCT/2014
     Route: 042
  2. ZOLEDRONIC ACID [Concomitant]
     Active Substance: ZOLEDRONIC ACID
     Route: 065
     Dates: start: 20140902
  3. DIPYRONE SODIUM [Concomitant]
     Route: 065
     Dates: start: 20140820, end: 20140823
  4. PERTUZUMAB [Suspect]
     Active Substance: PERTUZUMAB
     Indication: HER-2 POSITIVE BREAST CANCER
     Dosage: LOADING DOSE ON DAY 1, CYCLE 1 AS PER PROTOCOL,
     Route: 042
     Dates: start: 20140813
  5. PERTUZUMAB [Suspect]
     Active Substance: PERTUZUMAB
     Dosage: LAST DOSE PRIOR TO SAE WAS ON 13/OCT/2014, MAINTAINANCE DOSE
     Route: 042
  6. DIPYRONE SODIUM [Concomitant]
     Route: 065
     Dates: start: 20141102, end: 20141102
  7. TRASTUZUMAB [Suspect]
     Active Substance: TRASTUZUMAB
     Indication: HER-2 POSITIVE BREAST CANCER
     Dosage: LOADING DOSE ON DAY 1 OF CYCLE 1 AS PER PROTOCOL.
     Route: 042
     Dates: start: 20140814
  8. DOCETAXEL. [Suspect]
     Active Substance: DOCETAXEL
     Indication: HER-2 POSITIVE BREAST CANCER
     Dosage: LAST DOSE PRIOR TO SAE WAS ON 13/OCT/2014, EVERY 3 WEEKS ON DAY 1 OF SUBSEQUENT CYCLES (AS PER PROTO
     Route: 042
     Dates: start: 20140814

REACTIONS (2)
  - Febrile neutropenia [Recovered/Resolved]
  - Herpes zoster [Recovered/Resolved]

NARRATIVE: CASE EVENT DATE: 20141020
